FAERS Safety Report 5524029-5 (Version None)
Quarter: 2007Q4

REPORT INFORMATION
  Report Type: 
  Country: None (occurrence: None)
  Receive Date: 20071121
  Receipt Date: 20071116
  Transmission Date: 20080405
  Serious: Yes (Hospitalization)
  Sender: FDA-Public Use
  Company Number: US-BOEHRINGER INGELHEIM PHARMACEUTICALS, INC.-2007-BP-24838BP

PATIENT
  Age: 57 Year
  Sex: Female
  Weight: 77 kg

DRUGS (5)
  1. MIRAPEX [Suspect]
  2. LETROZOLE [Suspect]
     Indication: BREAST CANCER
     Route: 048
     Dates: start: 20071107
  3. LETROZOLE [Suspect]
     Route: 048
     Dates: start: 20071020, end: 20071106
  4. EXCEDRIN (MIGRAINE) [Suspect]
  5. ASPIRIN [Suspect]

REACTIONS (7)
  - ABDOMINAL PAIN [None]
  - COLITIS [None]
  - DIARRHOEA [None]
  - DIARRHOEA HAEMORRHAGIC [None]
  - DIVERTICULUM [None]
  - HAEMORRHOIDS [None]
  - LOWER GASTROINTESTINAL HAEMORRHAGE [None]
